FAERS Safety Report 17047924 (Version 1)
Quarter: 2019Q4

REPORT INFORMATION
  Report Type: Spontaneous
  Country: IT (occurrence: IT)
  Receive Date: 20191119
  Receipt Date: 20191119
  Transmission Date: 20200122
  Serious: Yes (Other)
  Sender: FDA-Public Use
  Company Number: IT-PFIZER INC-2019497291

PATIENT
  Age: 51 Year
  Sex: Male

DRUGS (2)
  1. VENLAFAXINE HCL [Suspect]
     Active Substance: VENLAFAXINE HYDROCHLORIDE
     Dosage: 40 DF, UNK
     Route: 048
  2. HALDOL [Suspect]
     Active Substance: HALOPERIDOL
     Dosage: 2 MG/ML, UNK
     Route: 048
     Dates: start: 20191021

REACTIONS (2)
  - Intentional product misuse [Unknown]
  - Intentional self-injury [Unknown]

NARRATIVE: CASE EVENT DATE: 20191021
